FAERS Safety Report 18090975 (Version 1)
Quarter: 2020Q3

REPORT INFORMATION
  Report Type: Spontaneous
  Country: US (occurrence: US)
  Receive Date: 20200729
  Receipt Date: 20200729
  Transmission Date: 20201103
  Serious: Yes (Other)
  Sender: FDA-Public Use
  Company Number: None

PATIENT
  Age: 71 Year
  Weight: 73.9 kg

DRUGS (2)
  1. PADCEV [Suspect]
     Active Substance: ENFORTUMAB VEDOTIN-EJFV
     Indication: TRANSITIONAL CELL CARCINOMA
     Dosage: ?          OTHER FREQUENCY:DAYS 1, 8, 15 Q28D;?
     Route: 042
  2. PEMBROLIZUMAB. [Suspect]
     Active Substance: PEMBROLIZUMAB

REACTIONS (5)
  - Pneumonitis [None]
  - Lung opacity [None]
  - Rash [None]
  - Toxicity to various agents [None]
  - Dyspnoea [None]

NARRATIVE: CASE EVENT DATE: 20200622
